FAERS Safety Report 16743263 (Version 1)
Quarter: 2019Q3

REPORT INFORMATION
  Report Type: Report from Study
  Country: None (occurrence: US)
  Receive Date: 20190827
  Receipt Date: 20190827
  Transmission Date: 20191005
  Serious: Yes (Other)
  Sender: FDA-Public Use
  Company Number: US-ABBVIE-19K-163-2886493-00

PATIENT
  Age: 66 Year
  Sex: Female
  Weight: 63.56 kg

DRUGS (2)
  1. HUMIRA [Suspect]
     Active Substance: ADALIMUMAB
     Indication: CROHN^S DISEASE
     Route: 058
     Dates: start: 201506, end: 20190722
  2. HUMIRA [Suspect]
     Active Substance: ADALIMUMAB
     Indication: INFLAMMATORY BOWEL DISEASE

REACTIONS (10)
  - Lymphoma [Unknown]
  - Cytopenia [Unknown]
  - Off label use [Unknown]
  - Blood immunoglobulin G decreased [Unknown]
  - Lymphoproliferative disorder [Recovered/Resolved]
  - Granuloma [Recovered/Resolved]
  - Interstitial lung disease [Recovered/Resolved]
  - Systemic lupus erythematosus [Unknown]
  - Immunodeficiency common variable [Not Recovered/Not Resolved]
  - B-lymphocyte count decreased [Unknown]

NARRATIVE: CASE EVENT DATE: 20190723
